FAERS Safety Report 6252758-7 (Version None)
Quarter: 2009Q2

REPORT INFORMATION
  Report Type: 
  Country: None (occurrence: None)
  Receive Date: 20090629
  Receipt Date: 20090629
  Transmission Date: 20091009
  Serious: Yes (Hospitalization)
  Sender: FDA-Public Use
  Company Number: None

PATIENT
  Age: 92 Year
  Sex: Male

DRUGS (2)
  1. VENTOLIN HFA [Suspect]
     Indication: DYSPNOEA
     Dosage: 2 PUFFS Q6H PRN PO
     Route: 048
     Dates: start: 20090401, end: 20090514
  2. VENTOLIN HFA [Suspect]
     Indication: DYSPNOEA EXERTIONAL
     Dosage: 2 PUFFS Q6H PRN PO
     Route: 048
     Dates: start: 20090401, end: 20090514

REACTIONS (2)
  - DRUG EFFECT DECREASED [None]
  - HEART RATE INCREASED [None]
